FAERS Safety Report 10163666 (Version 1)
Quarter: 2014Q2

REPORT INFORMATION
  Report Type: Spontaneous
  Country: US (occurrence: US)
  Receive Date: 20140509
  Receipt Date: 20140509
  Transmission Date: 20141212
  Serious: Yes (Other)
  Sender: FDA-Public Use
  Company Number: US-BAXTER-2014BAX022014

PATIENT
  Age: 8 Year
  Sex: 0

DRUGS (8)
  1. OSMITROL INJECTION (MANNITOL INJECTION, USP) [Suspect]
     Indication: INTRACRANIAL PRESSURE INCREASED
     Route: 065
  2. 3% SODIUM CHLORIDE INJECTION [Suspect]
     Indication: INTRACRANIAL PRESSURE INCREASED
     Route: 065
  3. SODIUM PHENYLACETATE [Concomitant]
     Indication: HYPERAMMONAEMIA
     Route: 010
  4. SODIUM BENZOATE [Concomitant]
     Indication: HYPERAMMONAEMIA
     Route: 010
  5. L-ARGININE [Concomitant]
     Indication: HYPERAMMONAEMIA
     Route: 010
  6. 10% DEXTROSE [Concomitant]
     Indication: HYPERAMMONAEMIA
     Route: 042
  7. PENTOBARBITAL [Concomitant]
     Indication: MEDICAL INDUCTION OF COMA
     Dosage: ON DAY 2
     Route: 065
  8. PENTOBARBITAL [Concomitant]
     Route: 041

REACTIONS (1)
  - Drug effect decreased [Recovered/Resolved]
